FAERS Safety Report 6380154-0 (Version None)
Quarter: 2009Q3

REPORT INFORMATION
  Report Type: 
  Country: None (occurrence: None)
  Receive Date: 20090929
  Receipt Date: 20090918
  Transmission Date: 20100115
  Serious: Yes (Life-Threatening, Other)
  Sender: FDA-Public Use
  Company Number: US-PFIZER INC-2009188414

PATIENT
  Sex: Female
  Weight: 19.5 kg

DRUGS (7)
  1. CELEBREX [Suspect]
     Indication: LYMPHANGIOMA
     Dosage: 200 MG, 2X/DAY
     Route: 048
     Dates: start: 20080703, end: 20090107
  2. ETOPOSIDE [Suspect]
     Indication: LYMPHANGIOMA
     Dosage: 50 MG/M2, CYCLIC
     Route: 048
     Dates: start: 20080703, end: 20090106
  3. CYCLOPHOSPHAMIDE [Suspect]
     Indication: LYMPHANGIOMA
     Dosage: 2.5 MG/KG/DAY OR 100 MG
     Route: 048
     Dates: start: 20080101
  4. THALOMID [Suspect]
     Indication: LYMPHANGIOMA
     Dosage: 100 MG, 1X/DAY
     Route: 048
     Dates: start: 20080703, end: 20090106
  5. FENOFIBRATE [Suspect]
     Indication: LYMPHANGIOMA
     Dosage: 67 MG, 1X/DAY
     Route: 048
     Dates: start: 20080703, end: 20090107
  6. BACTRIM [Concomitant]
     Dosage: 1 TSP (BID; M, T, W)
     Route: 048
  7. MIRALAX [Concomitant]
     Dosage: 1/2 CUPFUL
     Route: 048

REACTIONS (5)
  - ALANINE AMINOTRANSFERASE INCREASED [None]
  - ASPARTATE AMINOTRANSFERASE INCREASED [None]
  - LYMPHOPENIA [None]
  - NEUTROPHIL COUNT DECREASED [None]
  - WHITE BLOOD CELL COUNT DECREASED [None]
